FAERS Safety Report 12240131 (Version 1)
Quarter: 2016Q2

REPORT INFORMATION
  Report Type: Spontaneous
  Country: MX (occurrence: MX)
  Receive Date: 20160405
  Receipt Date: 20160405
  Transmission Date: 20160815
  Serious: Yes (Other)
  Sender: FDA-Public Use
  Company Number: MX-SA-2016SA064927

PATIENT
  Age: 75 Year
  Sex: Female
  Weight: 62 kg

DRUGS (2)
  1. DICLOFENAC [Concomitant]
     Active Substance: DICLOFENAC
     Indication: ARTHROPATHY
     Dosage: STRENGTH-100MG
     Route: 048
  2. AVAPRO [Suspect]
     Active Substance: IRBESARTAN
     Indication: HYPERTENSION
     Route: 048
     Dates: start: 2011, end: 201512

REACTIONS (2)
  - Hypertensive crisis [Recovered/Resolved]
  - Arteriosclerosis coronary artery [Not Recovered/Not Resolved]

NARRATIVE: CASE EVENT DATE: 20151010
